FAERS Safety Report 8330101-7 (Version None)
Quarter: 2012Q2

REPORT INFORMATION
  Report Type: 
  Country: None (occurrence: None)
  Receive Date: 20120502
  Receipt Date: 20120423
  Transmission Date: 20120825
  Serious: Yes (Other)
  Sender: FDA-Public Use
  Company Number: US-ELI_LILLY_AND_COMPANY-US201204008501

PATIENT
  Age: 55 Year
  Sex: Male

DRUGS (2)
  1. HUMATROPE [Suspect]
     Indication: GROWTH HORMONE DEFICIENCY
     Dosage: .8 ML, UNKNOWN
     Dates: end: 20050101
  2. HUMATROPE [Suspect]
     Dosage: .4 ML, UNKNOWN

REACTIONS (7)
  - DECREASED ACTIVITY [None]
  - EMOTIONAL DISORDER [None]
  - FEELING ABNORMAL [None]
  - ASTHENIA [None]
  - DEPRESSION [None]
  - FATIGUE [None]
  - LETHARGY [None]
